FAERS Safety Report 8577976 (Version 2)
Quarter: 2012Q4

REPORT INFORMATION
  Report Type: Report from Study
  Country: FR (occurrence: FR)
  Receive Date: 20120524
  Receipt Date: 20120828
  Transmission Date: 20130627
  Serious: Yes (Hospitalization, Other)
  Sender: FDA-Public Use
  Company Number: PHHY2012FR043951

PATIENT
  Age: 49 Year
  Sex: Female

DRUGS (1)
  1. EVEROLIMUS [Suspect]
     Indication: RENAL CANCER METASTATIC
     Dosage: 10 mg, daily
     Route: 048
     Dates: start: 20120118, end: 20120214

REACTIONS (8)
  - Epilepsy [Unknown]
  - Neck pain [Not Recovered/Not Resolved]
  - Nodule [Not Recovered/Not Resolved]
  - Nausea [Not Recovered/Not Resolved]
  - Rash erythematous [Not Recovered/Not Resolved]
  - Aphthous stomatitis [Not Recovered/Not Resolved]
  - Aphasia [Not Recovered/Not Resolved]
  - Bone pain [Not Recovered/Not Resolved]
